FAERS Safety Report 5730775-0 (Version None)
Quarter: 2008Q2

REPORT INFORMATION
  Report Type: 
  Country: None (occurrence: None)
  Receive Date: 20080505
  Receipt Date: 20080430
  Transmission Date: 20081010
  Serious: Yes (Death)
  Sender: FDA-Public Use
  Company Number: S08-USA-00923-01

PATIENT
  Age: 41 Year
  Sex: Male

DRUGS (12)
  1. CELEXA [Suspect]
     Dates: start: 20080223, end: 20080223
  2. HEPARIN [Concomitant]
  3. PHOSLO [Concomitant]
  4. LIPITOR [Concomitant]
  5. CLONIDINE [Concomitant]
  6. METOPROLOL TARTRATE [Concomitant]
  7. SENSIPAR (CINACALCET) [Concomitant]
  8. ANALGESICS (NOS) [Concomitant]
  9. PROTON PUMP INHIBITORS (NOS) [Concomitant]
  10. MULTI-VITAMIN [Concomitant]
  11. SUPPLEMENTS (NOS) [Concomitant]
  12. LAXATIVES (NOS) [Concomitant]

REACTIONS (7)
  - ASTHENIA [None]
  - FALL [None]
  - PULMONARY EMBOLISM [None]
  - SOMNOLENCE [None]
  - STOMACH DISCOMFORT [None]
  - SUDDEN DEATH [None]
  - WRONG DRUG ADMINISTERED [None]
